FAERS Safety Report 19078708 (Version 1)
Quarter: 2021Q1

REPORT INFORMATION
  Report Type: Spontaneous
  Country: IT (occurrence: IT)
  Receive Date: 20210331
  Receipt Date: 20210331
  Transmission Date: 20210420
  Serious: Yes (Other)
  Sender: FDA-Public Use
  Company Number: NVSC2021IT048260

PATIENT
  Age: 7 Year
  Sex: Male

DRUGS (10)
  1. MYCOPHENOLIC ACID. [Suspect]
     Active Substance: MYCOPHENOLIC ACID
     Indication: PROPHYLAXIS AGAINST TRANSPLANT REJECTION
     Dosage: 250 MG, Q12H (250 MG, TWICE DAILY, REDUCED DOSE)
     Route: 048
  2. DEXAMETHASONE. [Concomitant]
     Active Substance: DEXAMETHASONE
     Indication: FACIAL PARALYSIS
  3. DEXAMETHASONE. [Concomitant]
     Active Substance: DEXAMETHASONE
     Indication: EAR INFECTION
  4. PREDNISOLONE. [Suspect]
     Active Substance: PREDNISOLONE
     Indication: IMMUNOSUPPRESSANT DRUG THERAPY
  5. TACROLIMUS. [Suspect]
     Active Substance: TACROLIMUS
     Indication: IMMUNOSUPPRESSANT DRUG THERAPY
  6. DEXAMETHASONE. [Concomitant]
     Active Substance: DEXAMETHASONE
     Indication: PERTUSSIS
     Dosage: UNK
     Route: 065
     Dates: start: 201706
  7. TACROLIMUS. [Suspect]
     Active Substance: TACROLIMUS
     Indication: PROPHYLAXIS AGAINST TRANSPLANT REJECTION
     Dosage: 3.5 MG, QD
     Route: 048
  8. MYCOPHENOLATE MOFETIL. [Suspect]
     Active Substance: MYCOPHENOLATE MOFETIL
     Indication: PROPHYLAXIS AGAINST TRANSPLANT REJECTION
     Dosage: UNK (NUMBER OF UNITS IN THE INTERVAL  WAS 0.5 DAYS)
     Route: 065
  9. MYCOPHENOLATE MOFETIL. [Suspect]
     Active Substance: MYCOPHENOLATE MOFETIL
     Indication: IMMUNOSUPPRESSANT DRUG THERAPY
  10. PREDNISOLONE. [Suspect]
     Active Substance: PREDNISOLONE
     Indication: PROPHYLAXIS AGAINST TRANSPLANT REJECTION
     Dosage: 2.5 MG, QD
     Route: 065

REACTIONS (8)
  - Trichodysplasia spinulosa [Unknown]
  - BK virus infection [Unknown]
  - JC virus infection [Unknown]
  - Viraemia [Unknown]
  - Polyomavirus viraemia [Unknown]
  - Blood creatinine increased [Recovered/Resolved]
  - Human polyomavirus infection [Unknown]
  - Urinary tract infection viral [Unknown]

NARRATIVE: CASE EVENT DATE: 2017
